FAERS Safety Report 4546359-6 (Version None)
Quarter: 2005Q1

REPORT INFORMATION
  Report Type: 
  Country: None (occurrence: None)
  Receive Date: 20050103
  Receipt Date: 20041222
  Transmission Date: 20050727
  Serious: Yes (Death, Hospitalization, Other)
  Sender: FDA-Public Use
  Company Number: 2004117257

PATIENT
  Age: 70 Year
  Sex: Male

DRUGS (1)
  1. SILDENAFIL (SILDENAFIL) [Suspect]
     Indication: ILL-DEFINED DISORDER
     Dosage: 25 MG (50 MG), ORAL
     Route: 048

REACTIONS (1)
  - OEDEMA GENITAL [None]
